FAERS Safety Report 23342920 (Version 2)
Quarter: 2024Q1

REPORT INFORMATION
  Report Type: Spontaneous
  Country: RU (occurrence: RU)
  Receive Date: 20231227
  Receipt Date: 20240314
  Transmission Date: 20240410
  Serious: Yes (Death)
  Sender: FDA-Public Use
  Company Number: RU-JNJFOC-20231263686

PATIENT
  Age: 40 Year
  Sex: Female

DRUGS (13)
  1. TECLISTAMAB [Suspect]
     Active Substance: TECLISTAMAB
     Indication: Plasma cell myeloma
     Dosage: 1ST ADMINISTRATION
     Route: 065
     Dates: start: 20230829
  2. TECLISTAMAB [Suspect]
     Active Substance: TECLISTAMAB
     Dosage: 2ND ADMINISTRATION
     Route: 065
     Dates: start: 20230904
  3. TECLISTAMAB [Suspect]
     Active Substance: TECLISTAMAB
     Dosage: 3RD ADMINISTRATION
     Route: 065
     Dates: start: 20230908
  4. TECLISTAMAB [Suspect]
     Active Substance: TECLISTAMAB
     Dosage: 4TH ADMINISTRATION
     Route: 065
     Dates: start: 20230930
  5. TECLISTAMAB [Suspect]
     Active Substance: TECLISTAMAB
     Dosage: 5TH ADMINISTRATION
     Route: 065
     Dates: start: 20231007
  6. TECLISTAMAB [Suspect]
     Active Substance: TECLISTAMAB
     Dosage: 6TH ADMINISTRATION
     Route: 065
     Dates: start: 20231024
  7. TECLISTAMAB [Suspect]
     Active Substance: TECLISTAMAB
     Dosage: 7TH ADMINISTRATION
     Route: 065
     Dates: start: 20231103
  8. TECLISTAMAB [Suspect]
     Active Substance: TECLISTAMAB
     Dosage: 8TH ADMINISTRATION
     Route: 065
     Dates: start: 20231114
  9. FLUCONAZOLE [Concomitant]
     Active Substance: FLUCONAZOLE
     Route: 048
  10. ACYCLOVIR [Concomitant]
     Active Substance: ACYCLOVIR
     Route: 048
  11. COTRIMOXAZOLE [Concomitant]
     Active Substance: SULFAMETHOXAZOLE\TRIMETHOPRIM
     Route: 048
  12. GABAPENTIN [Concomitant]
     Active Substance: GABAPENTIN
     Route: 048
  13. FENTANYL [Concomitant]
     Active Substance: FENTANYL\FENTANYL CITRATE

REACTIONS (1)
  - Sepsis [Fatal]
